FAERS Safety Report 6298678-3 (Version None)
Quarter: 2009Q3

REPORT INFORMATION
  Report Type: 
  Country: None (occurrence: None)
  Receive Date: 20090804
  Receipt Date: 20090730
  Transmission Date: 20100115
  Serious: Yes (Hospitalization)
  Sender: FDA-Public Use
  Company Number: CERZ-1000558

PATIENT
  Age: 21 Month
  Sex: Male
  Weight: 10 kg

DRUGS (7)
  1. CEREZYME [Suspect]
     Indication: GAUCHER'S DISEASE
     Dosage: 800 U, QW, INTRAVENOUS
     Route: 042
     Dates: start: 20080501
  2. TYLENOL [Concomitant]
  3. BENADRYL [Concomitant]
  4. GLYCOPYRROLATE [Concomitant]
  5. OXYGEN (OXYGEN) [Concomitant]
  6. POLY-VI-SOL (VITAMINS NOS) [Concomitant]
  7. FERROUS SULFATE TAB [Concomitant]

REACTIONS (4)
  - DISEASE PROGRESSION [None]
  - DYSPHAGIA [None]
  - FAILURE TO THRIVE [None]
  - GAUCHER'S DISEASE [None]
